FAERS Safety Report 24334095 (Version 4)
Quarter: 2024Q4

REPORT INFORMATION
  Report Type: Spontaneous
  Country: DE (occurrence: DE)
  Receive Date: 20240918
  Receipt Date: 20241021
  Transmission Date: 20250115
  Serious: Yes (Other)
  Sender: SANOFI AVENTIS
  Company Number: DE-SANOFI-02211834

PATIENT
  Age: 22 Year
  Sex: Male

DRUGS (2)
  1. DUPIXENT [Suspect]
     Active Substance: DUPILUMAB
     Indication: Eosinophilic oesophagitis
     Dosage: 300 MG, QW
     Route: 058
     Dates: start: 2024, end: 2024
  2. DUPIXENT [Suspect]
     Active Substance: DUPILUMAB
     Dosage: 300.000MG QW

REACTIONS (8)
  - Necrotising oesophagitis [Recovering/Resolving]
  - Epstein-Barr virus infection reactivation [Unknown]
  - Herpes simplex hepatitis [Unknown]
  - Herpes simplex oesophagitis [Recovered/Resolved]
  - Superinfection bacterial [Unknown]
  - Hepatic enzyme increased [Unknown]
  - Blood bilirubin increased [Unknown]
  - Candida infection [Unknown]

NARRATIVE: CASE EVENT DATE: 20240101
